FAERS Safety Report 22212080 (Version 1)
Quarter: 2023Q2

REPORT INFORMATION
  Report Type: Spontaneous
  Country: BE (occurrence: BE)
  Receive Date: 20230414
  Receipt Date: 20230414
  Transmission Date: 20230722
  Serious: Yes (Other)
  Sender: FDA-Public Use
  Company Number: BE-BIOVITRUM-2023-BE-009114

PATIENT
  Age: 20 Year
  Sex: Male

DRUGS (1)
  1. AVATROMBOPAG [Suspect]
     Active Substance: AVATROMBOPAG
     Indication: Immune thrombocytopenia

REACTIONS (1)
  - Antiphospholipid syndrome [Unknown]
